FAERS Safety Report 9346003 (Version 1)
Quarter: 2013Q2

REPORT INFORMATION
  Report Type: Spontaneous
  Country: MT (occurrence: MT)
  Receive Date: 20130613
  Receipt Date: 20130613
  Transmission Date: 20140414
  Serious: Yes (Other)
  Sender: FDA-Public Use
  Company Number: PHHY2013MT059261

PATIENT
  Sex: Male
  Weight: 3.6 kg

DRUGS (1)
  1. METFORMIN [Suspect]
     Dosage: MATERNAL DOSE: 4 DF (850 MG), DAILY
     Route: 064

REACTIONS (2)
  - Jaundice neonatal [Unknown]
  - Foetal exposure during pregnancy [Unknown]
